FAERS Safety Report 7738215-7 (Version None)
Quarter: 2011Q3

REPORT INFORMATION
  Report Type: 
  Country: None (occurrence: None)
  Receive Date: 20110906
  Receipt Date: 20110822
  Transmission Date: 20111222
  Serious: Yes (Other)
  Sender: FDA-Public Use
  Company Number: 1000023231

PATIENT
  Sex: Female

DRUGS (1)
  1. CERVIDIL [Suspect]
     Indication: LABOUR INDUCTION
     Dosage: 10 MG, ONCE, VAGINAL
     Route: 067
     Dates: start: 20110811, end: 20110801

REACTIONS (6)
  - MATERNAL EXPOSURE DURING PREGNANCY [None]
  - CAESAREAN SECTION [None]
  - BRADYCARDIA FOETAL [None]
  - DEFAECATION URGENCY [None]
  - GASTROINTESTINAL PAIN [None]
  - ABDOMINAL DISCOMFORT [None]
